FAERS Safety Report 14968323 (Version 1)
Quarter: 2018Q2

REPORT INFORMATION
  Report Type: Other
  Country: GB (occurrence: GB)
  Receive Date: 20180604
  Receipt Date: 20180604
  Transmission Date: 20180711
  Serious: Yes (Death, Hospitalization, Other)
  Sender: FDA-Public Use
  Company Number: GB-LUPIN PHARMACEUTICALS INC.-2018-04098

PATIENT
  Age: 47 Year
  Sex: Female
  Weight: 109 kg

DRUGS (2)
  1. ABACAVIR AND LAMIVUDINE TABLETS [Suspect]
     Active Substance: ABACAVIR\LAMIVUDINE
     Indication: HIV INFECTION
     Dosage: 1 DF, ONCE A DAY
     Route: 048
     Dates: start: 20170418, end: 20171215
  2. EFAVIRENZ. [Suspect]
     Active Substance: EFAVIRENZ
     Indication: HIV INFECTION
     Dosage: 1 DF, QD
     Route: 048
     Dates: start: 20161004, end: 20171215

REACTIONS (4)
  - Jaundice [Unknown]
  - Hepatic necrosis [Unknown]
  - Death [Fatal]
  - Acute hepatic failure [Unknown]
